FAERS Safety Report 9731856 (Version 1)
Quarter: 2013Q4

REPORT INFORMATION
  Report Type: Spontaneous
  Country: US (occurrence: None)
  Receive Date: 20131204
  Receipt Date: 20131204
  Transmission Date: 20140711
  Serious: No
  Sender: FDA-Public Use
  Company Number: None

PATIENT
  Age: 54 Year
  Sex: Female
  Weight: 86.18 kg

DRUGS (7)
  1. ESCITALOPRAM [Suspect]
     Indication: ANXIETY
     Dosage: 1 TABLET, THEN DECREASED TO 1/4 TABLET--SYMPTOMS PERSISTED ; BEDTIME, THEN TRIED AT DINNER
     Route: 048
     Dates: start: 20131029, end: 20131113
  2. ENALAPRIL MALEATE W/HCTZ [Concomitant]
  3. ZEGRID? [Concomitant]
  4. RESTASIS [Concomitant]
  5. SIMVASTATIN [Concomitant]
  6. VIVELLE [Concomitant]
  7. PROGESTERONE [Concomitant]

REACTIONS (2)
  - Nausea [None]
  - Vomiting [None]
